FAERS Safety Report 13551449 (Version 1)
Quarter: 2017Q2

REPORT INFORMATION
  Report Type: Spontaneous
  Country: FR (occurrence: FR)
  Receive Date: 20170516
  Receipt Date: 20170516
  Transmission Date: 20170830
  Serious: Yes (Hospitalization, Other)
  Sender: FDA-Public Use
  Company Number: FR-TEVA-766893ROM

PATIENT
  Age: 62 Year
  Sex: Female

DRUGS (2)
  1. COTRIMOXAZOLE [Suspect]
     Active Substance: SULFAMETHOXAZOLE\TRIMETHOPRIM
     Indication: URINARY TRACT INFECTION
     Dosage: 3 DOSAGE FORMS DAILY;
     Route: 048
     Dates: start: 20170408, end: 20170408
  2. COTRIMOXAZOLE [Suspect]
     Active Substance: SULFAMETHOXAZOLE\TRIMETHOPRIM
     Dosage: 1 DOSAGE FORMS DAILY;
     Route: 048
     Dates: start: 20170409, end: 20170409

REACTIONS (4)
  - Thrombocytopenia [Recovering/Resolving]
  - Purpura [Recovering/Resolving]
  - Chills [Recovered/Resolved]
  - Haematoma [Recovering/Resolving]

NARRATIVE: CASE EVENT DATE: 20170411
